FAERS Safety Report 18941510 (Version 2)
Quarter: 2022Q1

REPORT INFORMATION
  Report Type: Spontaneous
  Country: US (occurrence: US)
  Receive Date: 20210225
  Receipt Date: 20220331
  Transmission Date: 20220424
  Serious: Yes (Other)
  Sender: FDA-Public Use
  Company Number: US-GLAXOSMITHKLINE-US2021GSK004812

PATIENT
  Sex: Female

DRUGS (8)
  1. RANITIDINE [Suspect]
     Active Substance: RANITIDINE
     Indication: Gastrooesophageal reflux disease
     Dosage: 150 MG, OCCASIONAL
     Route: 065
     Dates: start: 199701, end: 202001
  2. RANITIDINE [Suspect]
     Active Substance: RANITIDINE
     Dosage: 300 MG, OCCASIONAL
     Route: 065
     Dates: start: 199701, end: 202001
  3. RANITIDINE [Suspect]
     Active Substance: RANITIDINE
     Dosage: OCCASIONAL|150 MG|PRESCRIPTION
     Route: 065
     Dates: start: 199701, end: 202001
  4. RANITIDINE [Suspect]
     Active Substance: RANITIDINE
     Dosage: 300 MG
     Route: 065
     Dates: start: 199701, end: 202001
  5. RANITIDINE [Suspect]
     Active Substance: RANITIDINE
     Indication: Gastrooesophageal reflux disease
     Dosage: 150 MG, OCCASIONAL
     Route: 065
     Dates: start: 199701, end: 202001
  6. RANITIDINE [Suspect]
     Active Substance: RANITIDINE
     Dosage: 300 MG, OCCASIONAL
     Route: 065
     Dates: start: 199701, end: 202001
  7. RANITIDINE [Suspect]
     Active Substance: RANITIDINE
     Dosage: OCCASIONAL|150 MG|PRESCRIPTION
     Route: 065
     Dates: start: 199701, end: 202001
  8. RANITIDINE [Suspect]
     Active Substance: RANITIDINE
     Dosage: 300 MG
     Route: 065
     Dates: start: 199701, end: 202001

REACTIONS (1)
  - Renal cancer [Unknown]
